FAERS Safety Report 9842332 (Version 2)
Quarter: 2014Q1

REPORT INFORMATION
  Report Type: Spontaneous
  Country: DE (occurrence: DE)
  Receive Date: 20140124
  Receipt Date: 20140131
  Transmission Date: 20141002
  Serious: Yes (Congenital Anomaly, Other)
  Sender: FDA-Public Use
  Company Number: DE-PFIZER INC-2014016322

PATIENT
  Sex: Male
  Weight: 2.85 kg

DRUGS (2)
  1. TREVILOR RETARD [Suspect]
     Indication: DEPRESSION
     Dosage: 150 MG, 1X/DAY PREGNANCY WEEK 0-6 AND AGAIN FROM PREGNANCY WEEK 13 TO THE END
     Route: 064
  2. FOLIO FORTE [Concomitant]
     Indication: PROPHYLAXIS OF NEURAL TUBE DEFECT
     Dosage: 0.8 MG, 1X/DAY GESTATIONAL WEEK 5-37
     Route: 064

REACTIONS (7)
  - Maternal exposure during pregnancy [Recovered/Resolved]
  - Tricuspid valve incompetence [Not Recovered/Not Resolved]
  - Neonatal respiratory distress syndrome [Recovered/Resolved]
  - Drug withdrawal syndrome neonatal [Recovered/Resolved]
  - Atrial septal defect [Not Recovered/Not Resolved]
  - Opisthotonus [Recovered/Resolved]
  - Patent ductus arteriosus [Recovered/Resolved]
